FAERS Safety Report 17704793 (Version 2)
Quarter: 2020Q2

REPORT INFORMATION
  Report Type: Spontaneous
  Country: US (occurrence: US)
  Receive Date: 20200424
  Receipt Date: 20200505
  Transmission Date: 20200714
  Serious: No
  Sender: FDA-Public Use
  Company Number: US-SA-2020SA107070

PATIENT
  Age: 30 Year
  Sex: Female

DRUGS (1)
  1. DUPIXENT [Suspect]
     Active Substance: DUPILUMAB
     Dosage: 300 MG, OTHER
     Route: 058
     Dates: start: 202004

REACTIONS (6)
  - Fatigue [Unknown]
  - Injection site mass [Recovered/Resolved]
  - Dry eye [Unknown]
  - Headache [Unknown]
  - Eye pruritus [Unknown]
  - Eye discharge [Unknown]

NARRATIVE: CASE EVENT DATE: 202004
